FAERS Safety Report 14330267 (Version 2)
Quarter: 2018Q1

REPORT INFORMATION
  Report Type: Spontaneous
  Country: ES (occurrence: ES)
  Receive Date: 20171227
  Receipt Date: 20180220
  Transmission Date: 20180509
  Serious: Yes (Other)
  Sender: FDA-Public Use
  Company Number: ES-CANTON LABORATORIES, LLC-2037833

PATIENT
  Sex: Female

DRUGS (16)
  1. SIMVASTATIN. [Suspect]
     Active Substance: SIMVASTATIN
     Route: 065
     Dates: start: 20160901, end: 20170420
  2. LORMETAZEPAM [Suspect]
     Active Substance: LORMETAZEPAM
     Route: 065
     Dates: start: 20160901, end: 20160930
  3. TRAMADOL HYDROCHLORIDE AND PARACETAMOL [Suspect]
     Active Substance: ACETAMINOPHEN\TRAMADOL HYDROCHLORIDE
     Route: 065
     Dates: start: 20161118
  4. AMITRIPTYLINE HYDROCHLORIDE. [Suspect]
     Active Substance: AMITRIPTYLINE HYDROCHLORIDE
     Route: 065
     Dates: start: 20170509, end: 20170516
  5. AMLODIPINE [Suspect]
     Active Substance: AMLODIPINE BESYLATE
     Route: 065
     Dates: start: 20160901
  6. DIAZEPAM. [Suspect]
     Active Substance: DIAZEPAM
     Route: 065
     Dates: start: 20160930, end: 20161021
  7. ESCITALOPRAM [Suspect]
     Active Substance: ESCITALOPRAM OXALATE
     Route: 065
     Dates: start: 20160901
  8. PARACETAMOL [Suspect]
     Active Substance: ACETAMINOPHEN
     Route: 065
     Dates: start: 20160901, end: 20171118
  9. TOPIRAMATE. [Suspect]
     Active Substance: TOPIRAMATE
     Route: 065
     Dates: start: 20170203, end: 20170420
  10. GLIBENCLAMIDE [Suspect]
     Active Substance: GLYBURIDE
     Route: 065
     Dates: start: 20160901
  11. NAPROSYN [Suspect]
     Active Substance: NAPROXEN
     Indication: PRODUCT USED FOR UNKNOWN INDICATION
     Route: 065
     Dates: start: 20160901, end: 20161118
  12. DIAZEPAM AND SULPRIDE [Suspect]
     Active Substance: DIAZEPAM\SULPIRIDE
     Route: 065
     Dates: start: 20160901
  13. ENALAPRIL MALEATE AND HYDROCHLOROTHIAZIDE [Suspect]
     Active Substance: ENALAPRIL MALEATE\HYDROCHLOROTHIAZIDE
     Route: 065
     Dates: start: 20160901
  14. OMEPRAZOLE. [Suspect]
     Active Substance: OMEPRAZOLE
     Route: 065
     Dates: start: 20160901, end: 20161125
  15. TOPIRAMATE. [Suspect]
     Active Substance: TOPIRAMATE
     Route: 065
     Dates: start: 20170420, end: 20170509
  16. METOCLOPRAMIDE. [Concomitant]
     Active Substance: METOCLOPRAMIDE
     Route: 065

REACTIONS (8)
  - Insomnia [Recovering/Resolving]
  - Dizziness [Unknown]
  - Headache [Not Recovered/Not Resolved]
  - Fall [Unknown]
  - Treatment noncompliance [Unknown]
  - Depression [Recovering/Resolving]
  - Somnolence [Recovering/Resolving]
  - Pain in extremity [Unknown]

NARRATIVE: CASE EVENT DATE: 201610
